FAERS Safety Report 6636459-9 (Version None)
Quarter: 2010Q1

REPORT INFORMATION
  Report Type: 
  Country: None (occurrence: None)
  Receive Date: 20100226
  Receipt Date: 20090730
  Transmission Date: 20100710
  Serious: Yes (Hospitalization)
  Sender: FDA-Public Use
  Company Number: WAES 0907USA05713

PATIENT
  Age: 53 Year
  Sex: Female

DRUGS (2)
  1. PRINIVIL [Suspect]
     Dosage: PO
     Route: 048
     Dates: start: 19990901
  2. MEDROL [Concomitant]

REACTIONS (2)
  - DYSPNOEA [None]
  - FLUSHING [None]
